FAERS Safety Report 5405175-3 (Version None)
Quarter: 2007Q3

REPORT INFORMATION
  Report Type: 
  Country: None (occurrence: None)
  Receive Date: 20070803
  Receipt Date: 20070725
  Transmission Date: 20080115
  Serious: Yes (Hospitalization)
  Sender: FDA-Public Use
  Company Number: US-SANOFI-SYNTHELABO-A03200704843

PATIENT
  Sex: Male

DRUGS (5)
  1. STEROID [Concomitant]
     Dosage: UNK
     Route: 065
     Dates: start: 20070723
  2. ROCEPHIN [Concomitant]
     Dosage: UNK
     Route: 030
     Dates: start: 20070723
  3. CELEXA [Concomitant]
     Dosage: UNK
     Route: 048
  4. AMBIEN [Suspect]
     Indication: INSOMNIA
     Route: 048
     Dates: start: 20070601
  5. XANAX [Suspect]
     Dosage: UNK
     Route: 048

REACTIONS (2)
  - DELIRIUM [None]
  - LOSS OF CONSCIOUSNESS [None]
